FAERS Safety Report 7960677-0 (Version None)
Quarter: 2011Q4

REPORT INFORMATION
  Report Type: 
  Country: None (occurrence: None)
  Receive Date: 20111206
  Receipt Date: 20111128
  Transmission Date: 20120403
  Serious: Yes (Death, Hospitalization)
  Sender: FDA-Public Use
  Company Number: US-CELGENEUS-163-21880-11112760

PATIENT
  Sex: Male

DRUGS (2)
  1. NITROGLYCERIN [Concomitant]
     Route: 041
     Dates: start: 20111101
  2. REVLIMID [Suspect]
     Indication: MYELODYSPLASTIC SYNDROME
     Dosage: 2.5 MILLIGRAM
     Route: 048
     Dates: start: 20100520, end: 20111116

REACTIONS (6)
  - FLUID OVERLOAD [None]
  - CARDIAC FAILURE CONGESTIVE [None]
  - RENAL IMPAIRMENT [None]
  - PULMONARY HYPERTENSION [None]
  - MITRAL VALVE STENOSIS [None]
  - RIGHT VENTRICULAR DYSFUNCTION [None]
